FAERS Safety Report 8202882-4 (Version None)
Quarter: 2012Q1

REPORT INFORMATION
  Report Type: 
  Country: None (occurrence: None)
  Receive Date: 20120312
  Receipt Date: 20120312
  Transmission Date: 20120608
  Serious: Yes (Other)
  Sender: FDA-Public Use
  Company Number: None

PATIENT
  Age: 51 Year
  Sex: Male
  Weight: 76.657 kg

DRUGS (1)
  1. ATORVASTATIN [Suspect]
     Dosage: 10MG
     Route: 048
     Dates: start: 20120116, end: 20120301

REACTIONS (4)
  - ARTHRALGIA [None]
  - ASTHENOPIA [None]
  - MYALGIA [None]
  - FATIGUE [None]
